FAERS Safety Report 4726862-6 (Version None)
Quarter: 2005Q3

REPORT INFORMATION
  Report Type: 
  Country: None (occurrence: None)
  Receive Date: 20050726
  Receipt Date: 20050718
  Transmission Date: 20060218
  Serious: Yes (Other)
  Sender: FDA-Public Use
  Company Number: 805#9#2005-00053

PATIENT
  Age: 28 Day
  Sex: Female

DRUGS (4)
  1. ALPROSTADIL [Suspect]
     Indication: HEART DISEASE CONGENITAL
     Dosage: 4.6 - 92.2 NG/KG/MIN, MULTIPLE DOSE CHANGES INTRAVENOUS DRIP
     Route: 041
     Dates: start: 20050603, end: 20050701
  2. AMPICILLIN [Concomitant]
  3. AMIKACIN SULFATE [Concomitant]
  4. MENATETRENONE (MENATETRENONE) [Concomitant]

REACTIONS (5)
  - INCREASED BRONCHIAL SECRETION [None]
  - NEONATAL APNOEIC ATTACK [None]
  - NEONATAL HYPONATRAEMIA [None]
  - PYREXIA [None]
  - URINE OUTPUT INCREASED [None]
